FAERS Safety Report 14895584 (Version 2)
Quarter: 2018Q2

REPORT INFORMATION
  Report Type: Report from Study
  Country: AR (occurrence: AR)
  Receive Date: 20180515
  Receipt Date: 20180517
  Transmission Date: 20180711
  Serious: Yes (Death, Hospitalization, Other)
  Sender: FDA-Public Use
  Company Number: PHHY2018AR009297

PATIENT
  Age: 91 Year
  Sex: Female

DRUGS (3)
  1. SANDOSTATIN LAR DEPOT [Suspect]
     Active Substance: OCTREOTIDE ACETATE
     Indication: ACROMEGALY
     Dosage: 30 MG, QMO (EVERY 28 DAYS)
     Route: 065
     Dates: start: 20090101
  2. SANDOSTATIN LAR DEPOT [Suspect]
     Active Substance: OCTREOTIDE ACETATE
     Indication: PITUITARY TUMOUR BENIGN
  3. CORBIS [Concomitant]
     Indication: ARRHYTHMIA PROPHYLAXIS
     Route: 065

REACTIONS (6)
  - Cardiomegaly [Unknown]
  - Dyspnoea [Unknown]
  - Lung disorder [Unknown]
  - Multiple organ dysfunction syndrome [Unknown]
  - Pulmonary arterial pressure abnormal [Unknown]
  - Respiratory distress [Fatal]

NARRATIVE: CASE EVENT DATE: 20180428
